FAERS Safety Report 7553995-1 (Version None)
Quarter: 2011Q2

REPORT INFORMATION
  Report Type: 
  Country: None (occurrence: None)
  Receive Date: 20110617
  Receipt Date: 20110614
  Transmission Date: 20111010
  Serious: Yes (Other)
  Sender: FDA-Public Use
  Company Number: IT-PFIZER INC-2011130751

PATIENT
  Sex: Male

DRUGS (1)
  1. IRINOTECAN HCL [Suspect]

REACTIONS (5)
  - ASTHENIA [None]
  - ABDOMINAL PAIN UPPER [None]
  - DECREASED APPETITE [None]
  - ANAEMIA [None]
  - MELAENA [None]
